FAERS Safety Report 10397748 (Version 2)
Quarter: 2014Q3

REPORT INFORMATION
  Report Type: Spontaneous
  Country: US (occurrence: US)
  Receive Date: 20140821
  Receipt Date: 20140922
  Transmission Date: 20150326
  Serious: No
  Sender: FDA-Public Use
  Company Number: US-BIOGENIDEC-2014BI082182

PATIENT
  Sex: Male

DRUGS (7)
  1. REBIF [Concomitant]
     Active Substance: INTERFERON BETA-1A
  2. BETASERON [Concomitant]
     Active Substance: INTERFERON BETA-1B
  3. TYSABRI [Suspect]
     Active Substance: NATALIZUMAB
     Indication: PRODUCT USED FOR UNKNOWN INDICATION
     Route: 042
  4. TECFIDERA [Concomitant]
     Active Substance: DIMETHYL FUMARATE
     Indication: PRODUCT USED FOR UNKNOWN INDICATION
  5. COPAXONE [Concomitant]
     Active Substance: GLATIRAMER ACETATE
  6. AVONEX [Concomitant]
     Active Substance: INTERFERON BETA-1A
     Indication: PRODUCT USED FOR UNKNOWN INDICATION
     Route: 030
  7. GILENYA [Concomitant]
     Active Substance: FINGOLIMOD HYDROCHLORIDE

REACTIONS (3)
  - Decreased immune responsiveness [Recovered/Resolved]
  - Hepatic enzyme increased [Recovered/Resolved]
  - Multiple sclerosis relapse [Recovered/Resolved]
